FAERS Safety Report 4881307-0 (Version None)
Quarter: 2006Q1

REPORT INFORMATION
  Report Type: 
  Country: None (occurrence: None)
  Receive Date: 20060111
  Receipt Date: 20060111
  Transmission Date: 20060701
  Serious: Yes (Hospitalization)
  Sender: FDA-Public Use
  Company Number: None

PATIENT
  Age: 60 Year
  Sex: Female
  Weight: 49.8957 kg

DRUGS (1)
  1. REMICADE [Suspect]
     Indication: RHEUMATOID ARTHRITIS
     Dosage: EVERY SIX WEEKS @ IV
     Route: 042
     Dates: start: 20010701, end: 20050401

REACTIONS (2)
  - GASTRECTOMY [None]
  - NON-HODGKIN'S LYMPHOMA [None]
